FAERS Safety Report 16431544 (Version 5)
Quarter: 2019Q4

REPORT INFORMATION
  Report Type: Report from Study
  Country: US (occurrence: US)
  Receive Date: 20190614
  Receipt Date: 20191121
  Transmission Date: 20200122
  Serious: Yes (Hospitalization, Other)
  Sender: FDA-Public Use
  Company Number: US-BAYER-2019-110876

PATIENT
  Age: 76 Year
  Sex: Female

DRUGS (3)
  1. NEXAVAR [Suspect]
     Active Substance: SORAFENIB
     Indication: HEPATOCELLULAR CARCINOMA
     Dosage: 400 MG, BID ON AN EMPTY STOMACH
     Route: 048
     Dates: start: 20190219, end: 201902
  2. NEXAVAR [Suspect]
     Active Substance: SORAFENIB
     Indication: HEPATOCELLULAR CARCINOMA
     Dosage: 400 MG, BID
     Route: 048
  3. NEXAVAR [Suspect]
     Active Substance: SORAFENIB
     Indication: RENAL CELL CARCINOMA
     Dosage: 400 MG, BID ON AN EMPTY STOMACH
     Route: 048
     Dates: start: 201902

REACTIONS (21)
  - Diarrhoea [Recovered/Resolved]
  - Inflammation [Unknown]
  - Hypersomnia [Not Recovered/Not Resolved]
  - Blood magnesium decreased [Unknown]
  - Blood bilirubin increased [Unknown]
  - Diarrhoea [Unknown]
  - Blood potassium decreased [Unknown]
  - Dry skin [Unknown]
  - Abdominal pain [Unknown]
  - Pruritus [Unknown]
  - Gastric infection [Unknown]
  - Liver disorder [Unknown]
  - Alopecia [Unknown]
  - Food refusal [Not Recovered/Not Resolved]
  - Platelet count abnormal [Unknown]
  - Dehydration [Unknown]
  - Hepatitis [Unknown]
  - Back pain [Unknown]
  - Abdominal pain upper [Unknown]
  - Hospitalisation [Unknown]
  - Hepatic cirrhosis [Not Recovered/Not Resolved]
